FAERS Safety Report 9690321 (Version 3)
Quarter: 2015Q1

REPORT INFORMATION
  Report Type: Report from Study
  Country: NL (occurrence: NL)
  Receive Date: 20131115
  Receipt Date: 20150112
  Transmission Date: 20150721
  Serious: Yes (Death, Hospitalization, Disabling, Other)
  Sender: FDA-Public Use
  Company Number: NL-JNJFOC-20131108678

PATIENT
  Age: 87 Year
  Sex: Female
  Weight: 74 kg

DRUGS (7)
  1. FUROSEMIDE. [Concomitant]
     Active Substance: FUROSEMIDE
     Route: 065
     Dates: start: 20130722
  2. XARELTO [Suspect]
     Active Substance: RIVAROXABAN
     Indication: CEREBROVASCULAR ACCIDENT PROPHYLAXIS
     Route: 048
     Dates: start: 20130612, end: 20131005
  3. XARELTO [Suspect]
     Active Substance: RIVAROXABAN
     Indication: ATRIAL FIBRILLATION
     Route: 048
     Dates: start: 20130612, end: 20131005
  4. SELOKEEN [Concomitant]
     Active Substance: METOPROLOL
     Route: 065
     Dates: start: 20130610, end: 20130709
  5. INSULIN [Concomitant]
     Active Substance: INSULIN NOS
     Route: 065
     Dates: start: 20070305
  6. BISOPROLOL [Concomitant]
     Active Substance: BISOPROLOL
     Route: 065
     Dates: start: 20130710
  7. ATORVASTATIN [Concomitant]
     Active Substance: ATORVASTATIN
     Route: 065
     Dates: start: 20090415

REACTIONS (3)
  - Ischaemic stroke [Fatal]
  - Anaemia [Not Recovered/Not Resolved]
  - Colon neoplasm [Not Recovered/Not Resolved]

NARRATIVE: CASE EVENT DATE: 20130816
